FAERS Safety Report 5238797-3 (Version None)
Quarter: 2007Q1

REPORT INFORMATION
  Report Type: 
  Country: None (occurrence: None)
  Receive Date: 20070215
  Receipt Date: 20070207
  Transmission Date: 20070707
  Serious: Yes (Hospitalization, Other)
  Sender: FDA-Public Use
  Company Number: US-PFIZER INC-2006022569

PATIENT
  Sex: Male
  Weight: 99.3 kg

DRUGS (16)
  1. NEURONTIN [Suspect]
     Indication: NEUROPATHY PERIPHERAL
     Route: 048
     Dates: start: 20040619, end: 20040830
  2. NEURONTIN [Suspect]
     Indication: COMPLEX REGIONAL PAIN SYNDROME
  3. NEURONTIN [Suspect]
  4. TRAZODONE HCL [Concomitant]
  5. EFFEXOR [Concomitant]
     Dates: start: 20040628, end: 20040805
  6. LEXAPRO [Concomitant]
  7. FIORICET [Concomitant]
  8. LORTAB [Concomitant]
  9. SONATA [Concomitant]
  10. PAMELOR [Concomitant]
  11. ALPRAZOLAM [Concomitant]
     Dates: start: 20040602, end: 20040616
  12. HYDROCODONE BITARTRATE + ACETAMINOPHEN [Concomitant]
     Dosage: TEXT:10/325 MG
     Dates: start: 20040609, end: 20040616
  13. CLONIDINE [Concomitant]
     Dates: start: 20040619
  14. CLORAZEPATE [Concomitant]
     Dates: start: 20040619, end: 20050305
  15. BEXTRA [Concomitant]
     Dates: start: 20040805
  16. TRAMADOL HCL [Concomitant]
     Dates: start: 20040805, end: 20040927

REACTIONS (12)
  - BONE GRAFT [None]
  - DEPRESSION [None]
  - DRUG DEPENDENCE [None]
  - DRUG INEFFECTIVE [None]
  - GUN SHOT WOUND [None]
  - MEDIAN NERVE INJURY [None]
  - OSTEOMYELITIS [None]
  - PAIN [None]
  - RADIUS FRACTURE [None]
  - SUICIDE ATTEMPT [None]
  - SURGERY [None]
  - TENDON INJURY [None]
